FAERS Safety Report 5753850-3 (Version None)
Quarter: 2008Q2

REPORT INFORMATION
  Report Type: 
  Country: None (occurrence: None)
  Receive Date: 20080530
  Receipt Date: 20080201
  Transmission Date: 20081010
  Serious: Yes (Hospitalization)
  Sender: FDA-Public Use
  Company Number: A0706172A

PATIENT
  Age: 64 Year
  Sex: Male

DRUGS (16)
  1. LETAIRIS [Suspect]
     Indication: PULMONARY ARTERIAL HYPERTENSION
     Dosage: 5MG PER DAY
     Route: 048
     Dates: start: 20071019
  2. FLOLAN [Suspect]
     Route: 042
  3. REVATIO [Concomitant]
     Dosage: 40MG THREE TIMES PER DAY
     Route: 048
  4. DILTIAZEM [Concomitant]
     Dosage: 180MG PER DAY
     Route: 048
  5. SPIRONOLACTONE [Concomitant]
     Dosage: 25MG TWICE PER DAY
     Route: 048
  6. COUMADIN [Concomitant]
     Route: 048
  7. THEO-24 [Concomitant]
     Dosage: 300MG PER DAY
     Route: 048
  8. OXYGEN [Concomitant]
     Route: 055
  9. NEBULIZER [Concomitant]
     Route: 055
  10. PERSANTINE [Concomitant]
     Dosage: 50MG FOUR TIMES PER DAY
     Route: 048
  11. FORADIL [Concomitant]
     Dosage: 12MCG TWICE PER DAY
  12. SIMVASTATIN [Concomitant]
     Dosage: 20MG PER DAY
  13. MUCINEX [Concomitant]
     Dosage: 600MG TWICE PER DAY
  14. ALBUTEROL [Concomitant]
     Route: 055
  15. PULMICORT [Concomitant]
  16. PERSANTINE [Concomitant]
     Dosage: 50MG FOUR TIMES PER DAY
     Route: 048

REACTIONS (2)
  - ANAEMIA [None]
  - CENTRAL LINE INFECTION [None]
